FAERS Safety Report 7539863-X (Version None)
Quarter: 2011Q2

REPORT INFORMATION
  Report Type: 
  Country: None (occurrence: None)
  Receive Date: 20110610
  Receipt Date: 20110413
  Transmission Date: 20111010
  Serious: Yes (Hospitalization)
  Sender: FDA-Public Use
  Company Number: JP-BAYER-2011-017499

PATIENT
  Age: 82 Year
  Sex: Male
  Weight: 49 kg

DRUGS (10)
  1. NEXAVAR [Suspect]
     Indication: HEPATIC NEOPLASM MALIGNANT
     Dosage: DAILY DOSE 400 MG
     Route: 048
     Dates: start: 20110207, end: 20110220
  2. NEXAVAR [Suspect]
     Dosage: DAILY DOSE 800 MG
     Route: 048
     Dates: start: 20110303, end: 20110307
  3. NEXAVAR [Suspect]
     Dosage: DAILY DOSE 400 MG
     Route: 048
     Dates: start: 20110310, end: 20110313
  4. CONIEL [Concomitant]
     Indication: HYPERTENSION
     Dosage: DAILY DOSE 4 MG
     Route: 048
     Dates: start: 20100625
  5. NEXAVAR [Suspect]
     Dosage: DAILY DOSE 200 MG
     Route: 048
     Dates: start: 20110328, end: 20110330
  6. NEXAVAR [Suspect]
     Dosage: DAILY DOSE 200 MG
     Route: 048
     Dates: start: 20110405, end: 20110416
  7. NEXAVAR [Suspect]
     Dosage: DAILY DOSE 600 MG
     Route: 048
     Dates: start: 20110308, end: 20110309
  8. NEXAVAR [Suspect]
     Dosage: DAILY DOSE 600 MG
     Route: 048
     Dates: start: 20110221, end: 20110302
  9. OMEPRAZOLE [Concomitant]
     Indication: GASTRIC ULCER
     Dosage: DAILY DOSE 10 MG
     Route: 048
     Dates: start: 20080321
  10. MITIGLINIDE [Concomitant]
     Indication: DIABETES MELLITUS
     Dosage: DAILY DOSE 15 MG
     Route: 048
     Dates: start: 20081207

REACTIONS (7)
  - STOMATITIS [None]
  - SEPSIS [None]
  - PERITONITIS [None]
  - HYPERTENSION [None]
  - DIARRHOEA [None]
  - PYREXIA [None]
  - PALMAR-PLANTAR ERYTHRODYSAESTHESIA SYNDROME [None]
